FAERS Safety Report 10654920 (Version 1)
Quarter: 2014Q4

REPORT INFORMATION
  Report Type: Spontaneous
  Country: US (occurrence: None)
  Receive Date: 20141215
  Receipt Date: 20141215
  Transmission Date: 20150529
  Serious: No
  Sender: FDA-Public Use
  Company Number: None

PATIENT
  Age: 58 Year
  Sex: Female
  Weight: 89.36 kg

DRUGS (2)
  1. FOSAMAX [Suspect]
     Active Substance: ALENDRONATE SODIUM
     Indication: OSTEOPENIA
     Dosage: 1 PILL ONCE WEEKLY
     Route: 048
  2. FOSAMAX [Suspect]
     Active Substance: ALENDRONATE SODIUM
     Dosage: 1 PILL ONCE WEEKLY
     Route: 048

REACTIONS (5)
  - Tendonitis [None]
  - Movement disorder [None]
  - Hypoaesthesia [None]
  - Muscle spasms [None]
  - Paraesthesia [None]

NARRATIVE: CASE EVENT DATE: 20141212
